FAERS Safety Report 20559110 (Version 1)
Quarter: 2022Q1

REPORT INFORMATION
  Report Type: Spontaneous
  Country: US (occurrence: US)
  Receive Date: 20220307
  Receipt Date: 20220307
  Transmission Date: 20220423
  Serious: Yes (Other)
  Sender: FDA-Public Use
  Company Number: US-PFIZER INC-202200328314

PATIENT
  Age: 49 Year
  Sex: Female

DRUGS (1)
  1. IBRANCE [Suspect]
     Active Substance: PALBOCICLIB
     Dosage: 125 MG, DAILY (TAKE 1 TABLET BY MOUTH DAILY)
     Route: 048
     Dates: start: 201811

REACTIONS (2)
  - White blood cell count decreased [Unknown]
  - Limb injury [Unknown]

NARRATIVE: CASE EVENT DATE: 20220101
